FAERS Safety Report 18205967 (Version 1)
Quarter: 2020Q3

REPORT INFORMATION
  Report Type: Other
  Country: IN (occurrence: IN)
  Receive Date: 20200828
  Receipt Date: 20200828
  Transmission Date: 20201103
  Serious: Yes (Hospitalization)
  Sender: FDA-Public Use
  Company Number: IN-ORCHID HEALTHCARE-2089122

PATIENT
  Age: 51 Year
  Sex: Male

DRUGS (6)
  1. PYRIDOXINE [Concomitant]
     Active Substance: PYRIDOXINE
     Route: 065
  2. ETHIONAMIDE [Concomitant]
     Active Substance: ETHIONAMIDE
     Route: 065
  3. CYCLOSERINE. [Concomitant]
     Active Substance: CYCLOSERINE
     Route: 065
  4. PANTOPRAZOLE [Concomitant]
     Active Substance: PANTOPRAZOLE
     Route: 065
  5. LEVOFLOXACIN. [Suspect]
     Active Substance: LEVOFLOXACIN
     Indication: TUBERCULOSIS
     Route: 065
  6. ETHAMBUTOL [Concomitant]
     Active Substance: ETHAMBUTOL HYDROCHLORIDE
     Route: 065

REACTIONS (2)
  - Myoclonus [Recovered/Resolved]
  - Encephalopathy [Recovered/Resolved]
